FAERS Safety Report 25036683 (Version 1)
Quarter: 2025Q1

REPORT INFORMATION
  Report Type: Spontaneous
  Country: CN (occurrence: CN)
  Receive Date: 20250304
  Receipt Date: 20250304
  Transmission Date: 20250409
  Serious: Yes (Other)
  Sender: CHEMISCHE FABRIK KREUSSLER
  Company Number: CN-CHEMISCHE FABRIK KREUSSLER-ae004CN25

PATIENT
  Age: 51 Year
  Sex: Male
  Weight: 73 kg

DRUGS (1)
  1. AETHOXYSKLEROL [Suspect]
     Active Substance: POLIDOCANOL
     Indication: Varicose vein
     Dosage: 20 MG, QD
     Route: 042
     Dates: start: 20250203, end: 20250203

REACTIONS (1)
  - Pruritus [Recovering/Resolving]

NARRATIVE: CASE EVENT DATE: 20250203
